FAERS Safety Report 11102414 (Version 1)
Quarter: 2015Q2

REPORT INFORMATION
  Report Type: Spontaneous
  Country: IT (occurrence: IT)
  Receive Date: 20150511
  Receipt Date: 20150511
  Transmission Date: 20150821
  Serious: Yes (Death, Other)
  Sender: FDA-Public Use
  Company Number: PHHY2015IT053169

PATIENT
  Age: 49 Year
  Sex: Male

DRUGS (2)
  1. VERAPAMIL [Suspect]
     Active Substance: VERAPAMIL HYDROCHLORIDE
     Indication: CAPILLARY LEAK SYNDROME
     Dosage: 40 MG, BID
     Route: 065
  2. THEOPHYLLINE [Suspect]
     Active Substance: THEOPHYLLINE ANHYDROUS
     Indication: CAPILLARY LEAK SYNDROME
     Dosage: 375 MG, QD
     Route: 065

REACTIONS (5)
  - Palpitations [Unknown]
  - Tremor [Unknown]
  - Multi-organ disorder [Fatal]
  - Cardiac arrest [Fatal]
  - Hypotension [Unknown]
